FAERS Safety Report 5292251-1 (Version None)
Quarter: 2007Q2

REPORT INFORMATION
  Report Type: 
  Country: None (occurrence: None)
  Receive Date: 20070410
  Receipt Date: 20070404
  Transmission Date: 20071010
  Serious: Yes (Other)
  Sender: FDA-Public Use
  Company Number: GB-BRISTOL-MYERS SQUIBB COMPANY-13740444

PATIENT
  Age: 44 Year
  Sex: Male

DRUGS (2)
  1. ATAZANAVIR SULFATE [Suspect]
     Indication: HIV INFECTION
  2. RITONAVIR [Suspect]
     Indication: HIV INFECTION

REACTIONS (1)
  - HYPOMANIA [None]
